FAERS Safety Report 9742223 (Version 2)
Quarter: 2013Q4

REPORT INFORMATION
  Report Type: Report from Study
  Country: FR (occurrence: FR)
  Receive Date: 20131210
  Receipt Date: 20131210
  Transmission Date: 20140711
  Serious: Yes (Hospitalization, Other)
  Sender: FDA-Public Use
  Company Number: FR-ASTELLAS-2013EU006217

PATIENT
  Age: 75 Year
  Sex: Male
  Weight: 62 kg

DRUGS (6)
  1. ENZALUTAMIDE [Suspect]
     Indication: PROSTATE CANCER
     Dosage: 160 MG, UID/QD
     Route: 048
     Dates: start: 20130404, end: 20130610
  2. ENZALUTAMIDE [Suspect]
     Dosage: 80 MG, UID/QD
     Route: 048
     Dates: start: 20130712, end: 20130717
  3. ENZALUTAMIDE [Suspect]
     Dosage: 120 MG, UID/QD
     Route: 048
     Dates: start: 20130718, end: 20130730
  4. ENZALUTAMIDE [Suspect]
     Dosage: 80 MG, UID/QD
     Route: 048
     Dates: start: 20130909
  5. XGEVA [Concomitant]
     Indication: METASTASES TO BONE
     Dosage: 120 MG, UNKNOWN/D
     Route: 065
     Dates: start: 20130323
  6. DUROGESIC [Concomitant]
     Indication: PAIN
     Dosage: 50 UG/HOUR
     Route: 065

REACTIONS (6)
  - Decreased appetite [Not Recovered/Not Resolved]
  - Weight decreased [Not Recovered/Not Resolved]
  - Investigation [Unknown]
  - Device related infection [Recovering/Resolving]
  - Hypoalbuminaemia [Not Recovered/Not Resolved]
  - Abdominal pain upper [Unknown]
